FAERS Safety Report 25111945 (Version 3)
Quarter: 2025Q2

REPORT INFORMATION
  Report Type: Spontaneous
  Country: US (occurrence: US)
  Receive Date: 20250324
  Receipt Date: 20250421
  Transmission Date: 20250717
  Serious: No
  Sender: PFIZER
  Company Number: US-PFIZER INC-202500062206

PATIENT
  Age: 70 Year
  Sex: Male

DRUGS (2)
  1. CIBINQO [Suspect]
     Active Substance: ABROCITINIB
  2. CIBINQO [Suspect]
     Active Substance: ABROCITINIB

REACTIONS (2)
  - Drug ineffective [Unknown]
  - Pruritus [Recovering/Resolving]
